FAERS Safety Report 6983299-7 (Version None)
Quarter: 2010Q3

REPORT INFORMATION
  Report Type: 
  Country: None (occurrence: None)
  Receive Date: 20100914
  Receipt Date: 20100722
  Transmission Date: 20110219
  Serious: Yes (Other)
  Sender: FDA-Public Use
  Company Number: US-PFIZER INC-2010092772

PATIENT
  Sex: Female
  Weight: 78.912 kg

DRUGS (12)
  1. LYRICA [Suspect]
     Indication: FIBROMYALGIA
     Dosage: 200 MG, 1X/DAY
     Route: 048
     Dates: start: 20100101
  2. METHADONE [Concomitant]
     Dosage: 10 MG, UNK
  3. NORCO [Concomitant]
     Dosage: 7/325 MG, 4X/DAY
  4. PREVACID [Concomitant]
     Dosage: 325 MG, 4X/DAY
  5. KLONOPIN [Concomitant]
     Dosage: 2 MG, 4X/DAY
  6. CYMBALTA [Concomitant]
     Dosage: 60 MG, 2X/DAY
  7. LASIX [Concomitant]
     Dosage: 40 MG, DAILY
  8. K-DUR [Concomitant]
     Dosage: 10 MG, UNK
  9. ACIPHEX [Concomitant]
     Dosage: 20 MG, DAILY
  10. BISACODYL [Concomitant]
     Dosage: 5 MG, AS NEEDED
  11. ROBAXIN [Concomitant]
     Dosage: 750 MG, 4X/DAY
  12. PHENAZOPYRIDINE HCL TAB [Concomitant]
     Dosage: 200 MG, AS NEEDED

REACTIONS (3)
  - NAUSEA [None]
  - SOMNOLENCE [None]
  - WEIGHT INCREASED [None]
